FAERS Safety Report 9024559 (Version 1)
Quarter: 2013Q1

REPORT INFORMATION
  Report Type: Spontaneous
  Country: US (occurrence: None)
  Receive Date: 20130104
  Receipt Date: 20130104
  Transmission Date: 20140127
  Serious: Yes (Death, Hospitalization, Other)
  Sender: FDA-Public Use
  Company Number: AUR-APL-2013-00021

PATIENT
  Age: 39 Year
  Sex: Male

DRUGS (1)
  1. METFORMIN (METFORMIN) [Suspect]
     Indication: PRODUCT USED FOR UNKNOWN INDICATION
     Route: 048

REACTIONS (10)
  - Lactic acidosis [None]
  - Hypotension [None]
  - Blood sodium decreased [None]
  - Continuous haemodiafiltration [None]
  - Unresponsive to stimuli [None]
  - Renal failure [None]
  - Transaminases increased [None]
  - Acute respiratory distress syndrome [None]
  - Cardiac arrest [None]
  - Intentional overdose [None]
